FAERS Safety Report 13526955 (Version 5)
Quarter: 2017Q3

REPORT INFORMATION
  Report Type: Report from Study
  Country: CO (occurrence: CO)
  Receive Date: 20170509
  Receipt Date: 20170706
  Transmission Date: 20171127
  Serious: Yes (Death, Hospitalization, Other)
  Sender: FDA-Public Use
  Company Number: CO-BAYER-2017-081746

PATIENT
  Age: 77 Year
  Sex: Male

DRUGS (1)
  1. NEXAVAR [Suspect]
     Active Substance: SORAFENIB
     Indication: HEPATOCELLULAR CARCINOMA
     Dosage: 400 MG, BID
     Route: 048
     Dates: start: 20090101, end: 201705

REACTIONS (11)
  - Thrombosis [Recovering/Resolving]
  - Aphasia [Unknown]
  - Platelet count decreased [Unknown]
  - Blood sodium decreased [Recovering/Resolving]
  - Meningitis [Not Recovered/Not Resolved]
  - Mass [Unknown]
  - Facial paralysis [Unknown]
  - Headache [Not Recovered/Not Resolved]
  - Malnutrition [Unknown]
  - Respiratory failure [Fatal]
  - Limb injury [Recovered/Resolved]

NARRATIVE: CASE EVENT DATE: 20170406
